FAERS Safety Report 5328461-4 (Version None)
Quarter: 2007Q2

REPORT INFORMATION
  Report Type: 
  Country: None (occurrence: None)
  Receive Date: 20070518
  Receipt Date: 20070507
  Transmission Date: 20071010
  Serious: Yes (Other)
  Sender: FDA-Public Use
  Company Number: US-PFIZER INC-2007024289

PATIENT
  Sex: Female
  Weight: 82.1 kg

DRUGS (4)
  1. LIPITOR [Suspect]
     Indication: HYPERCHOLESTEROLAEMIA
  2. DIOVAN HCT [Concomitant]
  3. POTASSIUM CHLORIDE [Concomitant]
  4. CELEBREX [Concomitant]

REACTIONS (2)
  - COLITIS [None]
  - DIARRHOEA [None]
